FAERS Safety Report 10795861 (Version 3)
Quarter: 2015Q2

REPORT INFORMATION
  Report Type: Report from Study
  Country: CN (occurrence: CN)
  Receive Date: 20150216
  Receipt Date: 20150410
  Transmission Date: 20150821
  Serious: Yes (Death, Hospitalization)
  Sender: FDA-Public Use
  Company Number: CN-AMGEN-CHNCT2015013713

PATIENT
  Age: 67 Year
  Sex: Male
  Weight: 64 kg

DRUGS (20)
  1. METHOXYPHENAMINE [Concomitant]
     Active Substance: METHOXYPHENAMINE
     Indication: ASTHMA
  2. DOMPERIDONE [Concomitant]
     Active Substance: DOMPERIDONE
     Dosage: 10 MG, UNK
     Dates: start: 20140111
  3. PEMETREXED DISODIUM [Concomitant]
     Active Substance: PEMETREXED DISODIUM
     Dosage: 0.8-1 UNK, UNK
     Dates: start: 20141120, end: 20150109
  4. DIPHENHYDRAMINE HYDROCHLORIDE. [Concomitant]
     Active Substance: DIPHENHYDRAMINE HYDROCHLORIDE
     Indication: VOMITING
     Dosage: 25 MG, UNK
     Dates: start: 20150109, end: 20150110
  5. NEDAPLATIN [Concomitant]
     Active Substance: NEDAPLATIN
     Dosage: 140 MG, UNK
     Dates: start: 20141120, end: 20150109
  6. MOSAPRIDE CITRATE [Concomitant]
     Active Substance: MOSAPRIDE CITRATE
     Indication: GASTROINTESTINAL MOTILITY DISORDER
     Dosage: 5 MG, UNK
     Dates: start: 20150105, end: 20150110
  7. POTASSIUM CHLORIDE. [Concomitant]
     Active Substance: POTASSIUM CHLORIDE
     Indication: HYPOKALAEMIA
     Dosage: 1 G, UNK
     Dates: start: 20150105, end: 20150110
  8. METHOXYPHENAMINE [Concomitant]
     Active Substance: METHOXYPHENAMINE
     Indication: COUGH
     Dosage: 1 G, UNK
     Dates: start: 20150111
  9. IRON SUCROSE [Concomitant]
     Active Substance: IRON SUCROSE
     Indication: ANAEMIA
     Dosage: 100 MG, UNK
     Dates: start: 20150108, end: 20150110
  10. ZOLEDRONIC ACID [Concomitant]
     Active Substance: ZOLEDRONIC ACID
     Indication: METASTASES TO BONE
     Dosage: 4 MG, UNK
     Dates: start: 20150110, end: 20150110
  11. DEXAMETHASONE SODIUM PHOSPHATE. [Concomitant]
     Active Substance: DEXAMETHASONE SODIUM PHOSPHATE
     Indication: OEDEMA
     Dosage: 4.5 - 5 MG, UNK
     Dates: start: 20150105, end: 20150110
  12. ZOLPIDEM TARTRATE. [Concomitant]
     Active Substance: ZOLPIDEM TARTRATE
     Indication: INSOMNIA
     Dosage: 10 MG, UNK
     Dates: start: 20150104
  13. VITAMIN C [Concomitant]
     Active Substance: ASCORBIC ACID
     Indication: ANTIOXIDANT THERAPY
     Dosage: 3 G, UNK
     Dates: start: 20150108, end: 20150110
  14. VITAMINS WITH MINERALS [Concomitant]
     Active Substance: MINERALS\VITAMINS
     Dosage: 1 UNK, UNK
     Dates: start: 20150111
  15. DARBEPOETIN ALFA [Suspect]
     Active Substance: DARBEPOETIN ALFA
     Indication: ANAEMIA OF MALIGNANT DISEASE
     Dosage: 500 MUG/ML, Q3WK
     Route: 065
     Dates: start: 20150110, end: 20150110
  16. MEGESTROL ACETATE. [Concomitant]
     Active Substance: MEGESTROL ACETATE
     Dosage: 160 MG, UNK
     Dates: start: 20150105, end: 20150110
  17. TROPISETRON HYDROCHLORIDE [Concomitant]
     Active Substance: TROPISETRON HYDROCHLORIDE
     Indication: VOMITING
     Dosage: 6 MG, UNK
     Dates: start: 20150109, end: 20150110
  18. LORAZEPAM. [Concomitant]
     Active Substance: LORAZEPAM
     Indication: VOMITING
     Dosage: 0.34 MG, UNK
     Dates: start: 20150109, end: 20150110
  19. HALOPERIDOL. [Concomitant]
     Active Substance: HALOPERIDOL
     Indication: VOMITING
     Dosage: 1.5 MG, UNK
     Dates: start: 20150109, end: 20150110
  20. PANTOPRAZOLE SODIUM [Concomitant]
     Dosage: 40 MG, UNK
     Dates: start: 20150108, end: 20150110

REACTIONS (1)
  - Respiratory failure [Fatal]

NARRATIVE: CASE EVENT DATE: 20150206
